FAERS Safety Report 4507581-8 (Version None)
Quarter: 2004Q4

REPORT INFORMATION
  Report Type: 
  Country: None (occurrence: None)
  Receive Date: 20041123
  Receipt Date: 20041110
  Transmission Date: 20050328
  Serious: Yes (Death, Hospitalization)
  Sender: FDA-Public Use
  Company Number: 200418682US

PATIENT
  Age: 21 Year
  Sex: Female

DRUGS (3)
  1. TAXOTERE [Suspect]
     Indication: SARCOMA
     Dosage: DOSE: UNK
  2. GEMZAR [Concomitant]
     Indication: SARCOMA
  3. FLAGYL [Concomitant]
     Dosage: DOSE: NOT PROVIDED

REACTIONS (3)
  - BLOOD PRESSURE DECREASED [None]
  - CLOSTRIDIUM COLITIS [None]
  - HEART RATE DECREASED [None]
